FAERS Safety Report 5629704-X (Version None)
Quarter: 2008Q1

REPORT INFORMATION
  Report Type: 
  Country: None (occurrence: None)
  Receive Date: 20080218
  Receipt Date: 20080206
  Transmission Date: 20080703
  Serious: Yes (Hospitalization)
  Sender: FDA-Public Use
  Company Number: US-GILEAD-2008-0015233

PATIENT
  Sex: Male

DRUGS (20)
  1. AMBRISENTAN [Suspect]
     Indication: PULMONARY HYPERTENSION
     Route: 048
     Dates: start: 20080110
  2. AMBRISENTAN [Suspect]
     Route: 048
     Dates: start: 20070725, end: 20080109
  3. SILDENAFIL CITRATE [Concomitant]
     Indication: PULMONARY HYPERTENSION
     Dates: start: 20071019
  4. SILDENAFIL CITRATE [Concomitant]
     Dates: start: 20070129, end: 20071019
  5. WARFARIN SODIUM [Concomitant]
     Indication: PULMONARY HYPERTENSION
     Route: 048
     Dates: start: 20061101
  6. FUROSEMIDE [Concomitant]
     Route: 048
     Dates: start: 20061101
  7. METOLAZONE [Concomitant]
     Indication: DIURETIC THERAPY
     Route: 048
     Dates: start: 20070101
  8. HYDRALAZINE HCL [Concomitant]
     Indication: PULMONARY HYPERTENSION
     Route: 048
     Dates: start: 20061101
  9. DIGITEK [Concomitant]
     Indication: CARDIAC DISORDER
     Route: 048
     Dates: start: 20061101
  10. PULMICORT [Concomitant]
     Indication: PULMONARY HYPERTENSION
     Route: 055
     Dates: start: 20070101, end: 20070101
  11. FAMOTIDINE [Concomitant]
     Indication: STOMACH DISCOMFORT
     Route: 048
     Dates: start: 20070101
  12. NEXIUM [Concomitant]
     Indication: DYSPEPSIA
     Route: 048
     Dates: start: 20070930
  13. TEMAZEPAM [Concomitant]
     Indication: POOR QUALITY SLEEP
     Route: 048
     Dates: start: 20070801
  14. VITAMIN D [Concomitant]
     Route: 048
     Dates: start: 20070516
  15. PREDNISONE TAB [Concomitant]
     Indication: EFFUSION
     Route: 048
     Dates: start: 20071122
  16. PRED FORTE [Concomitant]
     Route: 047
     Dates: start: 20071130
  17. POTASSIUM CHLORIDE [Concomitant]
     Route: 048
     Dates: start: 20070101
  18. FLINTSTONE VITAMIN [Concomitant]
     Indication: VITAMIN SUPPLEMENTATION
     Route: 048
     Dates: start: 20070924
  19. ALKALOL [Concomitant]
     Route: 045
     Dates: start: 20070401
  20. SODIUM CHLORIDE 0.9% [Concomitant]
     Indication: NASAL DRYNESS
     Route: 045
     Dates: start: 20061101

REACTIONS (1)
  - PLEURAL EFFUSION [None]
